FAERS Safety Report 8459194-3 (Version None)
Quarter: 2012Q2

REPORT INFORMATION
  Report Type: 
  Country: None (occurrence: None)
  Receive Date: 20120622
  Receipt Date: 20120620
  Transmission Date: 20120825
  Serious: Yes (Hospitalization, Other)
  Sender: FDA-Public Use
  Company Number: US-CELGENEUS-163-21880-12050474

PATIENT
  Sex: Female

DRUGS (5)
  1. LASIX [Suspect]
     Route: 065
  2. AREDIA [Concomitant]
     Route: 065
  3. COUMADIN [Concomitant]
     Route: 065
  4. REVLIMID [Suspect]
     Indication: MULTIPLE MYELOMA
     Dosage: 5 MILLIGRAM
     Route: 048
     Dates: start: 20110401, end: 20120409
  5. HYDROCHLOROTHIAZIDE [Suspect]
     Route: 065

REACTIONS (4)
  - BLOOD POTASSIUM DECREASED [None]
  - BLOOD SODIUM DECREASED [None]
  - UPPER LIMB FRACTURE [None]
  - FALL [None]
